FAERS Safety Report 14660994 (Version 2)
Quarter: 2018Q2

REPORT INFORMATION
  Report Type: Spontaneous
  Country: JP (occurrence: JP)
  Receive Date: 20180320
  Receipt Date: 20180425
  Transmission Date: 20180711
  Serious: Yes (Other)
  Sender: FDA-Public Use
  Company Number: JP-JNJFOC-20180322931

PATIENT
  Age: 75 Year
  Sex: Female
  Weight: 52.4 kg

DRUGS (4)
  1. XARELTO [Suspect]
     Active Substance: RIVAROXABAN
     Indication: ATRIAL FIBRILLATION
     Route: 048
     Dates: start: 20161117, end: 20161207
  2. MICAMLO [Concomitant]
     Active Substance: AMLODIPINE BESYLATE\TELMISARTAN
     Route: 065
  3. MICARDIS [Concomitant]
     Active Substance: TELMISARTAN
     Route: 065
  4. XARELTO [Suspect]
     Active Substance: RIVAROXABAN
     Indication: EMBOLIC STROKE
     Route: 048
     Dates: start: 20161117, end: 20161207

REACTIONS (2)
  - Drug ineffective [Unknown]
  - Trousseau^s syndrome [Unknown]

NARRATIVE: CASE EVENT DATE: 20161204
